FAERS Safety Report 9533521 (Version 1)
Quarter: 2013Q2

REPORT INFORMATION
  Report Type: Spontaneous
  Country: US (occurrence: None)
  Receive Date: 20130403
  Receipt Date: 20130403
  Transmission Date: 20140414
  Serious: Yes (Hospitalization)
  Sender: FDA-Public Use
  Company Number: US-2012-11026

PATIENT
  Age: 52 Year
  Sex: Male

DRUGS (7)
  1. BUSULFEX [Suspect]
     Indication: TRANSPLANT
     Dates: start: 20120520, end: 20120521
  2. FLUDARABINE [Suspect]
     Indication: TRANSPLANT
     Route: 042
     Dates: start: 20120512, end: 20120521
  3. AMSALYO [Suspect]
     Indication: TRANSPLANT
     Dates: start: 20120512, end: 20120515
  4. ARACYTINE [Suspect]
     Indication: TRANSPLANT
     Route: 042
     Dates: start: 20120512, end: 20120515
  5. ENDOXAN [Suspect]
     Indication: TRANSPLANT
     Route: 042
     Dates: start: 20120519, end: 20120519
  6. THYMOGLOBULINE [Suspect]
     Indication: TRANSPLANT
     Route: 042
     Dates: start: 20120519, end: 20120519
  7. GRANOCYTE [Concomitant]

REACTIONS (1)
  - Venoocclusive disease [None]
